FAERS Safety Report 23150805 (Version 1)
Quarter: 2023Q4

REPORT INFORMATION
  Report Type: Spontaneous
  Country: US (occurrence: US)
  Receive Date: 20231106
  Receipt Date: 20231106
  Transmission Date: 20240110
  Serious: Yes (Other)
  Sender: FDA-Public Use
  Company Number: US-ORGANON-O2311USA000488

PATIENT
  Sex: Female

DRUGS (1)
  1. NEXPLANON [Suspect]
     Active Substance: ETONOGESTREL
     Dosage: 1 IMPLANT (3 YEARS AGO)
     Route: 059
     Dates: start: 2020

REACTIONS (4)
  - Device dislocation [Unknown]
  - Incorrect product administration duration [Unknown]
  - Pain in extremity [Unknown]
  - Arthralgia [Unknown]
